FAERS Safety Report 11192974 (Version 2)
Quarter: 2015Q3

REPORT INFORMATION
  Report Type: Report from Study
  Country: CA (occurrence: CA)
  Receive Date: 20150616
  Receipt Date: 20150708
  Transmission Date: 20151125
  Serious: Yes (Death, Hospitalization, Other)
  Sender: FDA-Public Use
  Company Number: CA-TOLMAR, INC.-2015CA005256

PATIENT

DRUGS (20)
  1. CARVEDILOL. [Concomitant]
     Active Substance: CARVEDILOL
     Dosage: 9.375 MG, AT BED TIME
  2. LASIX [Concomitant]
     Active Substance: FUROSEMIDE
     Dosage: 40 ONCE A DAY, REASSESSED DAILY
  3. HYDROMORPH [Concomitant]
     Active Substance: HYDROMORPHONE
     Dosage: 0.5 MG, Q 1 HOURS PRN
     Route: 058
  4. ELIGARD [Suspect]
     Active Substance: LEUPROLIDE ACETATE
     Dosage: UNK
  5. CARVEDILOL. [Concomitant]
     Active Substance: CARVEDILOL
     Dosage: 12.5 DAILY AM
  6. MIRTAZAPINE. [Concomitant]
     Active Substance: MIRTAZAPINE
     Dosage: 7.5 UNK, AT BEDTIME
  7. SPIRONOLACTONE. [Concomitant]
     Active Substance: SPIRONOLACTONE
     Dosage: 50 UNK, DAILY
  8. TYLENOL [Concomitant]
     Active Substance: ACETAMINOPHEN
  9. VERSED [Concomitant]
     Active Substance: MIDAZOLAM HYDROCHLORIDE
     Dosage: 0.5 Q4H, PRN
  10. RIFAMPIN. [Concomitant]
     Active Substance: RIFAMPIN
     Dosage: 600 UNK, DAILY
  11. ELIGARD [Suspect]
     Active Substance: LEUPROLIDE ACETATE
     Indication: PROSTATE CANCER
     Dosage: UNK
     Route: 058
     Dates: start: 20140625
  12. SCOPOLAMINE                        /00008701/ [Concomitant]
     Active Substance: SCOPOLAMINE
     Dosage: 0.4 Q4H, PRN
  13. ELIGARD [Suspect]
     Active Substance: LEUPROLIDE ACETATE
     Dosage: UNK
     Route: 058
     Dates: start: 20140924
  14. ELIGARD [Suspect]
     Active Substance: LEUPROLIDE ACETATE
     Dosage: UNK
     Route: 058
     Dates: start: 20141217
  15. HALDOL [Concomitant]
     Active Substance: HALOPERIDOL
     Dosage: 0.5 Q4H, PRN
  16. ELIGARD [Suspect]
     Active Substance: LEUPROLIDE ACETATE
     Dosage: UNK
     Route: 058
     Dates: start: 20150311
  17. ANUSOL                             /00117301/ [Concomitant]
     Active Substance: BALSAM PERU\BISMUTH HYDROXIDE\BISMUTH SUBGALLATE\BORIC ACID\ZINC OXIDE
  18. HYDROMORPH [Concomitant]
     Active Substance: HYDROMORPHONE
     Dosage: 0.5MG, Q6H
     Route: 058
  19. PANTOLOC                           /01263204/ [Concomitant]
     Active Substance: PANTOPRAZOLE SODIUM
     Dosage: 40 UNK, BID
  20. GRAVOL [Concomitant]
     Active Substance: DIMENHYDRINATE
     Dosage: 12.5 TO 25

REACTIONS (5)
  - Cardiac failure [Fatal]
  - Aortic valve incompetence [Unknown]
  - Cardiac disorder [Fatal]
  - Acute myocardial infarction [Fatal]
  - Pneumonia [Fatal]

NARRATIVE: CASE EVENT DATE: 201506
